FAERS Safety Report 20037651 (Version 1)
Quarter: 2021Q4

REPORT INFORMATION
  Report Type: Spontaneous
  Country: FR (occurrence: None)
  Receive Date: 20211105
  Receipt Date: 20211105
  Transmission Date: 20220303
  Serious: Yes (Death)
  Sender: FDA-Public Use
  Company Number: FR-Orion Corporation ORION PHARMA-TREX2021-0095

PATIENT
  Age: 77 Year
  Sex: Male

DRUGS (13)
  1. METHOTREXATE [Suspect]
     Active Substance: METHOTREXATE
     Indication: Spondylitis
     Route: 048
     Dates: start: 20210913
  2. RIMIFON [Concomitant]
     Active Substance: ISONIAZID
     Indication: Tuberculosis
     Route: 048
     Dates: start: 20210911
  3. COMIRNATY [Concomitant]
     Active Substance: TOZINAMERAN
     Indication: COVID-19 immunisation
     Route: 030
     Dates: start: 20210913
  4. ETHAMBUTOL HYDROCHLORIDE [Concomitant]
     Active Substance: ETHAMBUTOL HYDROCHLORIDE
     Indication: Tuberculosis
     Route: 048
     Dates: start: 20210913
  5. RIFAMPIN [Concomitant]
     Active Substance: RIFAMPIN
     Indication: Tuberculosis
     Route: 048
     Dates: start: 20210913
  6. PYRAZINAMIDE [Concomitant]
     Active Substance: PYRAZINAMIDE
     Indication: Tuberculosis
     Route: 048
     Dates: start: 20210913
  7. SIMPONI [Concomitant]
     Active Substance: GOLIMUMAB
     Indication: Spondylitis
     Dosage: STRENGTH: 100 MG
     Route: 058
     Dates: start: 202009
  8. LOVENOX [Concomitant]
     Active Substance: ENOXAPARIN SODIUM
     Indication: Thrombosis prophylaxis
     Route: 058
     Dates: start: 20210912
  9. FOLIC ACID [Concomitant]
     Active Substance: FOLIC ACID
     Route: 065
  10. DUFFU K [Concomitant]
     Route: 065
  11. PYRIDOXINE [Concomitant]
     Active Substance: PYRIDOXINE
     Route: 065
  12. ALFUZOSIN [Concomitant]
     Active Substance: ALFUZOSIN
     Dosage: STRENGTH: 40 MG
     Route: 065
  13. BISOPROLOL [Concomitant]
     Active Substance: BISOPROLOL
     Dosage: STRENGTH: 2.5 MG
     Route: 065

REACTIONS (4)
  - Rectal haemorrhage [Fatal]
  - Gastrointestinal haemorrhage [Fatal]
  - Anaemia [Unknown]
  - Thrombocytopenia [Unknown]

NARRATIVE: CASE EVENT DATE: 20210914
